FAERS Safety Report 12303728 (Version 1)
Quarter: 2016Q2

REPORT INFORMATION
  Report Type: Spontaneous
  Country: US (occurrence: None)
  Receive Date: 20160425
  Receipt Date: 20160425
  Transmission Date: 20160815
  Serious: Yes (Death)
  Sender: FDA-Public Use
  Company Number: None

PATIENT
  Age: 45 Year
  Sex: Male

DRUGS (2)
  1. ENBREL [Suspect]
     Active Substance: ETANERCEPT
     Indication: RHEUMATOID ARTHRITIS
     Dosage: GIVEN INTO/UNDER THE SKIN
     Dates: start: 20150407, end: 20150407
  2. ENBREL [Suspect]
     Active Substance: ETANERCEPT
     Indication: PSORIASIS
     Dosage: GIVEN INTO/UNDER THE SKIN
     Dates: start: 20150407, end: 20150407

REACTIONS (1)
  - Multiple organ dysfunction syndrome [None]

NARRATIVE: CASE EVENT DATE: 20150409
